FAERS Safety Report 14765361 (Version 1)
Quarter: 2018Q2

REPORT INFORMATION
  Report Type: Spontaneous
  Country: CA (occurrence: CA)
  Receive Date: 20180416
  Receipt Date: 20180416
  Transmission Date: 20180711
  Serious: Yes (Hospitalization)
  Sender: FDA-Public Use
  Company Number: CA-INDIVIOR LIMITED-INDV-110239-2018

PATIENT
  Age: 67 Year
  Sex: Female

DRUGS (4)
  1. SUBOXONE [Suspect]
     Active Substance: BUPRENORPHINE HYDROCHLORIDE\NALOXONE HYDROCHLORIDE
     Indication: DRUG DEPENDENCE
     Dosage: 2 TABLETS IN THE MORNING, TWO TABLETS AT NIGHT
     Route: 060
     Dates: start: 2017, end: 2017
  2. SUBOXONE [Suspect]
     Active Substance: BUPRENORPHINE HYDROCHLORIDE\NALOXONE HYDROCHLORIDE
     Indication: PAIN
     Dosage: TAPERED DOWN BY CUTTING
     Route: 060
     Dates: start: 2017, end: 201712
  3. MARIJUANA [Suspect]
     Active Substance: CANNABIS SATIVA SUBSP. INDICA TOP
     Indication: PRODUCT USED FOR UNKNOWN INDICATION
     Dosage: UNK
     Route: 065
  4. ANALGESICS [Suspect]
     Active Substance: UNSPECIFIED INGREDIENT
     Indication: PRODUCT USED FOR UNKNOWN INDICATION
     Dosage: UNK
     Route: 065

REACTIONS (13)
  - Wound [Unknown]
  - Product use issue [Recovered/Resolved]
  - Wound abscess [Unknown]
  - Rubber sensitivity [Unknown]
  - Wrong technique in product usage process [Recovered/Resolved]
  - Loss of consciousness [Recovered/Resolved]
  - Insomnia [Unknown]
  - Drug abuse [Recovered/Resolved]
  - Tooth loss [Recovered/Resolved]
  - Stress [Unknown]
  - Pain [Unknown]
  - Depressed mood [Unknown]
  - Intentional underdose [Recovered/Resolved]

NARRATIVE: CASE EVENT DATE: 2017
